FAERS Safety Report 7939437-2 (Version None)
Quarter: 2011Q4

REPORT INFORMATION
  Report Type: 
  Country: None (occurrence: None)
  Receive Date: 20111125
  Receipt Date: 20111115
  Transmission Date: 20120403
  Serious: Yes (Disabling, Other)
  Sender: FDA-Public Use
  Company Number: AU-ROCHE-1013446

PATIENT
  Sex: Female

DRUGS (2)
  1. DOLASED ANALGESIC CALMATIVE [Concomitant]
  2. ACTEMRA [Suspect]
     Indication: RHEUMATOID ARTHRITIS
     Dates: start: 20110820

REACTIONS (3)
  - MALAISE [None]
  - ARTHRALGIA [None]
  - NASOPHARYNGITIS [None]
